FAERS Safety Report 13657118 (Version 4)
Quarter: 2017Q2

REPORT INFORMATION
  Report Type: Spontaneous
  Country: TH (occurrence: TH)
  Receive Date: 20170615
  Receipt Date: 20170627
  Transmission Date: 20170830
  Serious: Yes (Other)
  Sender: FDA-Public Use
  Company Number: ALCN2017TH003888

PATIENT

DRUGS (1)
  1. MYDRIACYL [Suspect]
     Active Substance: TROPICAMIDE
     Indication: PREOPERATIVE CARE
     Route: 047

REACTIONS (2)
  - Eye haemorrhage [Unknown]
  - Eye oedema [Unknown]
